FAERS Safety Report 24760157 (Version 1)
Quarter: 2024Q4

REPORT INFORMATION
  Report Type: Spontaneous
  Country: US (occurrence: US)
  Receive Date: 20241220
  Receipt Date: 20241220
  Transmission Date: 20250115
  Serious: No
  Sender: PFIZER
  Company Number: US-PFIZER INC-202400327187

PATIENT
  Age: 35 Year
  Sex: Male

DRUGS (2)
  1. TUKYSA [Suspect]
     Active Substance: TUCATINIB
     Indication: Colorectal cancer
     Dosage: 300 MG, 2X/DAY (TAKE 2 TABLETS BY MOUTH TWICE DAILY)
     Route: 048
  2. TUKYSA [Suspect]
     Active Substance: TUCATINIB
     Indication: Colon cancer

REACTIONS (2)
  - Asthenia [Unknown]
  - Off label use [Unknown]
